FAERS Safety Report 17983768 (Version 1)
Quarter: 2020Q3

REPORT INFORMATION
  Report Type: Spontaneous
  Country: CA (occurrence: CA)
  Receive Date: 20200706
  Receipt Date: 20200706
  Transmission Date: 20201103
  Serious: Yes (Hospitalization, Disabling, Other)
  Sender: FDA-Public Use
  Company Number: CA-TEVA-2020-CA-1796627

PATIENT
  Age: 1 Year
  Sex: Male

DRUGS (10)
  1. DOXORUBICIN HYDROCHLORIDE  INJECTION [Suspect]
     Active Substance: DOXORUBICIN HYDROCHLORIDE
     Route: 042
  2. CARBOPLATIN. [Suspect]
     Active Substance: CARBOPLATIN
     Route: 042
  3. KETAMINE (UNKNOWN) [Concomitant]
     Active Substance: KETAMINE
  4. ONDANSETRON [Concomitant]
     Active Substance: ONDANSETRON
  5. PIPERACILLIN SODIUM/TAZOBACTAM SODIUM POWDER FOR INJECTION [Concomitant]
     Active Substance: PIPERACILLIN SODIUM\TAZOBACTAM SODIUM
  6. DEXAMETHASONE. [Concomitant]
     Active Substance: DEXAMETHASONE
  7. CARBOPLATIN. [Suspect]
     Active Substance: CARBOPLATIN
     Route: 042
  8. SULFAMETHOXAZOLE AND TRIMETHOPRIM [Concomitant]
     Active Substance: SULFAMETHOXAZOLE\TRIMETHOPRIM
  9. ETOPOSIDE. [Suspect]
     Active Substance: ETOPOSIDE
     Route: 042
  10. MORPHINE [Concomitant]
     Active Substance: MORPHINE

REACTIONS (6)
  - Neutrophil count decreased [Unknown]
  - Febrile neutropenia [Unknown]
  - Hypoxia [Unknown]
  - Intensive care [Unknown]
  - Pyrexia [Unknown]
  - Respiratory distress [Unknown]
